FAERS Safety Report 9371451 (Version 2)
Quarter: 2013Q3

REPORT INFORMATION
  Report Type: Report from Study
  Country: FR (occurrence: FR)
  Receive Date: 20130627
  Receipt Date: 20130725
  Transmission Date: 20140515
  Serious: Yes (Hospitalization)
  Sender: FDA-Public Use
  Company Number: FR-ROCHE-1239962

PATIENT
  Age: 73 Year
  Sex: Male
  Weight: 55 kg

DRUGS (4)
  1. RITUXIMAB [Suspect]
     Indication: DIFFUSE LARGE B-CELL LYMPHOMA
     Dosage: DATE OF THE LAST DOSE ADMINISTERED BEFORE SAE : 15/SEP/2011 (670 MG).
     Route: 042
     Dates: start: 20110803
  2. CYCLOPHOSPHAMIDE [Suspect]
     Indication: DIFFUSE LARGE B-CELL LYMPHOMA
     Dosage: DATE OF THE LAST DOSE ADMINISTERED BEFORE SAE: 15/SEP/2011 (1340 MG)
     Route: 042
     Dates: start: 20110803
  3. VINCRISTINE [Suspect]
     Indication: DIFFUSE LARGE B-CELL LYMPHOMA
     Dosage: DATE OF THE LAST DOSE ADMINISTERED BEFORE SAE:  2 MG, 15/SEP/2011
     Route: 042
     Dates: start: 20110803
  4. PREDNISONE [Suspect]
     Indication: DIFFUSE LARGE B-CELL LYMPHOMA
     Dosage: DATE OF THE LAST DOSE ADMINISTERED BEFORE SAE: 311 MG, 15/SEP/2011.
     Route: 042
     Dates: start: 20110803

REACTIONS (2)
  - Febrile bone marrow aplasia [Recovered/Resolved]
  - Lung infection [Recovered/Resolved]
